FAERS Safety Report 13180996 (Version 1)
Quarter: 2017Q1

REPORT INFORMATION
  Report Type: Spontaneous
  Country: US (occurrence: US)
  Receive Date: 20170202
  Receipt Date: 20170202
  Transmission Date: 20170428
  Serious: No
  Sender: FDA-Public Use
  Company Number: US-SMITH AND NEPHEW, INC-2016SMT00227

PATIENT
  Sex: Male

DRUGS (2)
  1. REGRANEX [Suspect]
     Active Substance: BECAPLERMIN
     Dosage: UNK
     Route: 061
     Dates: start: 20160220
  2. REGRANEX [Suspect]
     Active Substance: BECAPLERMIN
     Indication: WOUND
     Dosage: UNK
     Route: 061
     Dates: start: 201509

REACTIONS (6)
  - Erythema [Unknown]
  - Tenderness [Unknown]
  - Ingrowing nail [Recovered/Resolved]
  - Localised infection [Recovered/Resolved]
  - Off label use [Unknown]
  - Application site vesicles [Unknown]

NARRATIVE: CASE EVENT DATE: 201509
